FAERS Safety Report 5145197-3 (Version None)
Quarter: 2006Q4

REPORT INFORMATION
  Report Type: 
  Country: None (occurrence: None)
  Receive Date: 20061107
  Receipt Date: 20061012
  Transmission Date: 20070319
  Serious: Yes (Death)
  Sender: FDA-Public Use
  Company Number: MY-ROCHE-467026

PATIENT
  Age: 89 Year
  Sex: Female

DRUGS (1)
  1. TICLID [Suspect]
     Indication: DRUG USE FOR UNKNOWN INDICATION
     Dosage: PATIENT WAS TREATED WITH TICLOPIDINE FOR APPROXIMATELY 10 YEARS.
     Route: 048

REACTIONS (1)
  - GASTROINTESTINAL HAEMORRHAGE [None]
